FAERS Safety Report 14721548 (Version 2)
Quarter: 2018Q2

REPORT INFORMATION
  Report Type: Spontaneous
  Country: US (occurrence: US)
  Receive Date: 20180405
  Receipt Date: 20180411
  Transmission Date: 20180711
  Serious: No
  Sender: FDA-Public Use
  Company Number: US-GLAXOSMITHKLINE-US2018055946

PATIENT
  Sex: Male

DRUGS (8)
  1. SALMETEROL [Suspect]
     Active Substance: SALMETEROL
  2. ALBUTEROL. [Suspect]
     Active Substance: ALBUTEROL
  3. ADVAIR DISKUS [Suspect]
     Active Substance: FLUTICASONE PROPIONATE\SALMETEROL XINAFOATE
     Indication: ACCIDENTAL EXPOSURE TO PRODUCT
  4. BREO ELLIPTA [Suspect]
     Active Substance: FLUTICASONE FUROATE\VILANTEROL TRIFENATATE
     Indication: ACCIDENTAL EXPOSURE TO PRODUCT
  5. CALCIUM CARBONATE. [Concomitant]
     Active Substance: CALCIUM CARBONATE
  6. PROVENTIL [Suspect]
     Active Substance: ALBUTEROL
     Indication: ACCIDENTAL EXPOSURE TO PRODUCT
  7. DULERA [Suspect]
     Active Substance: FORMOTEROL FUMARATE DIHYDRATE\MOMETASONE FUROATE
     Indication: ACCIDENTAL EXPOSURE TO PRODUCT
  8. MAGNESIUM [Concomitant]
     Active Substance: MAGNESIUM

REACTIONS (6)
  - Insomnia [Unknown]
  - Dyspepsia [Not Recovered/Not Resolved]
  - Headache [Not Recovered/Not Resolved]
  - Salivary hypersecretion [Not Recovered/Not Resolved]
  - Middle insomnia [Unknown]
  - Accidental exposure to product [Unknown]
